FAERS Safety Report 11455445 (Version 3)
Quarter: 2015Q3

REPORT INFORMATION
  Report Type: Other
  Country: JP (occurrence: JP)
  Receive Date: 20150903
  Receipt Date: 20150918
  Transmission Date: 20151125
  Serious: Yes (Hospitalization, Other)
  Sender: FDA-Public Use
  Company Number: JP-CONCORDIA PHARMACEUTICALS INC.-CO-KX-JP-2015-011

PATIENT
  Age: 75 Year
  Sex: Male

DRUGS (9)
  1. URINORM [Concomitant]
     Active Substance: BENZBROMARONE
     Dates: end: 20150319
  2. MIKELAN [Concomitant]
     Dates: end: 20150319
  3. MEFRUSIDE [Suspect]
     Active Substance: MEFRUSIDE
     Indication: HYPERTENSION
     Route: 048
  4. PERDIPINE [Concomitant]
     Active Substance: NICARDIPINE HYDROCHLORIDE
     Dates: end: 20150319
  5. PLAVIX [Concomitant]
     Active Substance: CLOPIDOGREL BISULFATE
  6. LIVALO [Concomitant]
     Active Substance: PITAVASTATIN CALCIUM
     Dates: end: 20150319
  7. KAYEXALATE [Suspect]
     Active Substance: SODIUM POLYSTYRENE SULFONATE
     Indication: HYPERKALAEMIA
     Route: 048
  8. CAPTOPRIL. [Concomitant]
     Active Substance: CAPTOPRIL
     Dates: end: 20150319
  9. FRANDOL [Concomitant]
     Active Substance: ISOSORBIDE DINITRATE
     Route: 065
     Dates: end: 20150319

REACTIONS (2)
  - Rhabdomyolysis [Recovered/Resolved]
  - Hypokalaemia [Recovered/Resolved]

NARRATIVE: CASE EVENT DATE: 20150319
